FAERS Safety Report 6674628-2 (Version None)
Quarter: 2010Q2

REPORT INFORMATION
  Report Type: 
  Country: None (occurrence: None)
  Receive Date: 20100409
  Receipt Date: 20100402
  Transmission Date: 20101027
  Serious: Yes (Other)
  Sender: FDA-Public Use
  Company Number: US-ROCHE-695773

PATIENT
  Sex: Female

DRUGS (2)
  1. BEVACIZUMAB [Suspect]
     Dosage: DOSE: 10 MG/KG OVER 30-90 MIN ON DAY 1 AND 15
     Route: 042
     Dates: start: 20090612, end: 20090727
  2. TEMSIROLIMUS [Suspect]
     Dosage: DOSE: 25 MG OVER 30 MIN ON DAYS: 1, 8, 15 AND 22
     Route: 042
     Dates: start: 20090612, end: 20090810

REACTIONS (1)
  - MEMORY IMPAIRMENT [None]
